FAERS Safety Report 6981898-X (Version None)
Quarter: 2010Q3

REPORT INFORMATION
  Report Type: 
  Country: None (occurrence: None)
  Receive Date: 20100914
  Receipt Date: 20091019
  Transmission Date: 20110219
  Serious: No
  Sender: FDA-Public Use
  Company Number: US-PFIZER INC-2009285829

PATIENT
  Sex: Male
  Weight: 176.87 kg

DRUGS (3)
  1. LYRICA [Suspect]
     Indication: NERVE INJURY
     Dosage: 75 MG, 2X/DAY
     Dates: start: 20080401
  2. METFORMIN [Concomitant]
     Indication: DIABETES MELLITUS
     Dosage: 500 MG, UNK
  3. NAPROXEN [Concomitant]
     Dosage: 500 MG, 2X/DAY

REACTIONS (8)
  - BALANCE DISORDER [None]
  - COUGH [None]
  - DYSPNOEA [None]
  - HYPOAESTHESIA [None]
  - HYPOKINESIA [None]
  - URINARY INCONTINENCE [None]
  - VISION BLURRED [None]
  - WEIGHT INCREASED [None]
